FAERS Safety Report 20185028 (Version 5)
Quarter: 2022Q1

REPORT INFORMATION
  Report Type: Spontaneous
  Country: ES (occurrence: ES)
  Receive Date: 20211215
  Receipt Date: 20220307
  Transmission Date: 20220423
  Serious: Yes (Life-Threatening, Hospitalization, Other)
  Sender: FDA-Public Use
  Company Number: ES-AEMPS-1059409

PATIENT
  Age: 69 Year
  Sex: Male

DRUGS (8)
  1. AMOXICILLIN [Suspect]
     Active Substance: AMOXICILLIN
     Indication: Infection
     Dosage: 2250 MILLIGRAM, 1 IN 8 HOUR
     Route: 065
     Dates: start: 20211116, end: 20211116
  2. AMOXICILLIN [Suspect]
     Active Substance: AMOXICILLIN
     Dosage: 750 MILLIGRAM, 3 TIMES A DAY (750 MG, TID)
     Route: 065
     Dates: start: 20211116, end: 20211116
  3. OMEPRAZOLE [Suspect]
     Active Substance: OMEPRAZOLE
     Indication: Product used for unknown indication
     Dosage: 20 MILLIGRAM, ONCE A DAY (20 MG, QD)
     Route: 048
     Dates: start: 20211116, end: 20211116
  4. METAMIZOLE SODIUM [Suspect]
     Active Substance: METAMIZOLE SODIUM
     Indication: Analgesic therapy
     Dosage: 575 MILLIGRAM (575 MG (20 DOSE VIAL))
     Route: 048
     Dates: start: 20211116
  5. METAMIZOLE\PROPOXYPHENE [Suspect]
     Active Substance: METAMIZOLE\PROPOXYPHENE
     Indication: Analgesic therapy
     Dosage: UNK (575 MG HARD CAPSULES, 20 CAPSULES)
     Route: 048
     Dates: start: 20211116, end: 20211116
  6. ENALAPRIL MALEATE\HYDROCHLOROTHIAZIDE [Concomitant]
     Active Substance: ENALAPRIL MALEATE\HYDROCHLOROTHIAZIDE
     Indication: Product used for unknown indication
     Dosage: ONCE A DAY (20 MG/12.5 MG, IN THE MORNING)
     Route: 065
  7. TIOTROPIUM [Concomitant]
     Active Substance: TIOTROPIUM
     Indication: Product used for unknown indication
     Dosage: ONCE A DAY (DAILY, IN THE MORNING)
     Route: 065
  8. SIMVASTATIN [Concomitant]
     Active Substance: SIMVASTATIN
     Indication: Product used for unknown indication
     Dosage: 10 MILLIGRAM (10 MG, IN THE NIGHT)
     Route: 065

REACTIONS (9)
  - Anaphylactic shock [Recovered/Resolved]
  - Acute kidney injury [Recovered/Resolved]
  - Respiratory distress [Recovered/Resolved]
  - Lip oedema [Recovered/Resolved]
  - Wheezing [Recovered/Resolved]
  - Pruritus [Recovered/Resolved]
  - Rash [Recovered/Resolved]
  - Abdominal pain [Recovered/Resolved]
  - Eyelid oedema [Recovered/Resolved]

NARRATIVE: CASE EVENT DATE: 20211116
